FAERS Safety Report 16495615 (Version 5)
Quarter: 2019Q3

REPORT INFORMATION
  Report Type: Spontaneous
  Country: US (occurrence: US)
  Receive Date: 20190628
  Receipt Date: 20190906
  Transmission Date: 20191004
  Serious: No
  Sender: FDA-Public Use
  Company Number: US-PFIZER INC-2019275753

PATIENT
  Age: 51 Year
  Sex: Male

DRUGS (1)
  1. SUTENT [Suspect]
     Active Substance: SUNITINIB MALATE
     Indication: GASTROINTESTINAL STROMAL TUMOUR
     Dosage: 50 MG, CYCLIC (1 CAPSULE DAILY FOR 14 DAYS THEN STOP FOR 7 DAYS THEN REPEAT)
     Route: 048
     Dates: start: 20190603

REACTIONS (15)
  - Pain [Unknown]
  - Pruritus [Unknown]
  - Abdominal pain upper [Unknown]
  - Skin discolouration [Recovering/Resolving]
  - Gastric disorder [Unknown]
  - Sluggishness [Unknown]
  - Feeding disorder [Unknown]
  - Headache [Unknown]
  - Gastrooesophageal reflux disease [Unknown]
  - Weight decreased [Unknown]
  - Product dose omission [Unknown]
  - Decreased appetite [Unknown]
  - Peripheral swelling [Recovering/Resolving]
  - Joint swelling [Recovering/Resolving]
  - Throat irritation [Unknown]
